FAERS Safety Report 16354467 (Version 3)
Quarter: 2019Q3

REPORT INFORMATION
  Report Type: Report from Study
  Country: JP (occurrence: JP)
  Receive Date: 20190524
  Receipt Date: 20190809
  Transmission Date: 20191004
  Serious: Yes (Death, Hospitalization)
  Sender: FDA-Public Use
  Company Number: PHJP2019JP005590

PATIENT
  Age: 63 Year
  Sex: Female

DRUGS (3)
  1. FARYDAK [Suspect]
     Active Substance: PANOBINOSTAT
     Indication: PLASMA CELL MYELOMA
     Dosage: 20 MG, QD
     Route: 048
     Dates: start: 20190322, end: 20190402
  2. BORTEZOMIB. [Suspect]
     Active Substance: BORTEZOMIB
     Indication: PLASMA CELL MYELOMA
     Dosage: UNK
     Route: 058
     Dates: start: 20190322, end: 20190402
  3. DEXAMETHASONE. [Suspect]
     Active Substance: DEXAMETHASONE
     Indication: PLASMA CELL MYELOMA
     Dosage: UNK
     Route: 065
     Dates: start: 20190322, end: 20190402

REACTIONS (8)
  - Pneumonia aspiration [Not Recovered/Not Resolved]
  - Renal failure [Not Recovered/Not Resolved]
  - Diarrhoea [Unknown]
  - Cerebral haemorrhage [Fatal]
  - Septic shock [Not Recovered/Not Resolved]
  - Hepatic function abnormal [Recovering/Resolving]
  - Bone marrow failure [Recovering/Resolving]
  - Vomiting [Unknown]

NARRATIVE: CASE EVENT DATE: 20190323
